FAERS Safety Report 4276574-0 (Version None)
Quarter: 2004Q1

REPORT INFORMATION
  Report Type: 
  Country: None (occurrence: None)
  Receive Date: 20040120
  Receipt Date: 20040106
  Transmission Date: 20041129
  Serious: Yes (Other)
  Sender: FDA-Public Use
  Company Number: A0430360A

PATIENT
  Age: 33 Year
  Sex: Female
  Weight: 58.9676 kg

DRUGS (32)
  1. NICODERM CQ [Suspect]
     Indication: EX-SMOKER
     Dosage: 21 MG/ TRANSDERMAL
     Route: 062
     Dates: start: 20010702, end: 20010703
  2. ZAFIRLUKAST [Concomitant]
  3. SALBUTAMOL SULPHATE [Concomitant]
  4. ALLEGRA-D [Concomitant]
  5. ATENOLOL [Concomitant]
  6. CITALOPRAM HYDROBROMIDE [Concomitant]
  7. CLONAZEPAM [Concomitant]
  8. PROCHLORPERAZINE [Concomitant]
  9. DARVOCET-N 100 [Concomitant]
  10. DONNATAL [Concomitant]
  11. LOMOTIL [Concomitant]
  12. OLANZAPINE [Concomitant]
  13. MECLIZINE [Concomitant]
  14. FLUCONAZOLE [Concomitant]
  15. MOMETASONE FUROATE [Concomitant]
  16. GABAPENTIN [Concomitant]
  17. PREDNISONE [Concomitant]
  18. LANSOPRAZOLE [Concomitant]
  19. PRAVASTATIN SODIUM [Concomitant]
  20. METOCLOPRAMIDE HCL [Concomitant]
  21. QUININE [Concomitant]
  22. SALMETEROL XINAFOATE [Concomitant]
  23. CARISOPRODOL [Concomitant]
  24. TEMAZEPAM [Concomitant]
  25. GATIFLOXACIN [Concomitant]
  26. TRIAMTERENE [Concomitant]
  27. RANITIDINE HYDROCHLORIDE [Concomitant]
  28. NAPROXEN [Concomitant]
  29. ROFECOXIB [Concomitant]
  30. BECLOMETHASONE DIPROPIONATE [Concomitant]
  31. ORTHO CYCLEN-28 [Concomitant]
  32. PROMETHAZINE [Concomitant]

REACTIONS (6)
  - BLINDNESS HYSTERICAL [None]
  - BLINDNESS TRANSIENT [None]
  - CRYING [None]
  - HEAT STROKE [None]
  - VISION BLURRED [None]
  - VOMITING [None]
